FAERS Safety Report 16841000 (Version 4)
Quarter: 2020Q2

REPORT INFORMATION
  Report Type: Report from Study
  Country: US (occurrence: US)
  Receive Date: 20190923
  Receipt Date: 20200522
  Transmission Date: 20200713
  Serious: Yes (Hospitalization, Other)
  Sender: FDA-Public Use
  Company Number: PHEH2019US038734

PATIENT
  Sex: Female
  Weight: 77.1 kg

DRUGS (3)
  1. TREPROSTINIL. [Suspect]
     Active Substance: TREPROSTINIL
     Indication: PULMONARY ARTERIAL HYPERTENSION
     Dosage: 2.5 MG/ML,28 NG/KG/MIN,CONTINOUS
     Route: 042
     Dates: start: 20190807
  2. TREPROSTINIL. [Suspect]
     Active Substance: TREPROSTINIL
     Dosage: 2.5 MG/ML,28 NG/KG/MIN,CONTINOUS
     Route: 042
     Dates: start: 20190807
  3. LETAIRIS [Concomitant]
     Active Substance: AMBRISENTAN
     Indication: PRODUCT USED FOR UNKNOWN INDICATION
     Route: 065

REACTIONS (8)
  - Urine output decreased [Unknown]
  - Oxygen consumption decreased [Unknown]
  - Choking [Recovering/Resolving]
  - Heart rate increased [Unknown]
  - Fluid retention [Unknown]
  - Dyspnoea [Unknown]
  - Cough [Recovering/Resolving]
  - Drug ineffective [Unknown]
